FAERS Safety Report 5119887-2 (Version None)
Quarter: 2006Q3

REPORT INFORMATION
  Report Type: 
  Country: None (occurrence: None)
  Receive Date: 20060929
  Receipt Date: 20060918
  Transmission Date: 20061208
  Serious: Yes (Other)
  Sender: FDA-Public Use
  Company Number: HQWYE271208NOV04

PATIENT
  Age: 49 Year
  Sex: Male
  Weight: 74.91 kg

DRUGS (7)
  1. RAPAMUNE [Suspect]
     Indication: RENAL TRANSPLANT
     Dosage: 8 MG 1X PER 1 DAY ORAL ; 4 MG 1X PER DAY ORAL ; 5 MG 2X PER 1 DAY ORAL ; 4 MG 2X PER 1 DAY ORAL
     Route: 048
     Dates: end: 20041001
  2. RAPAMUNE [Suspect]
     Indication: RENAL TRANSPLANT
     Dosage: 8 MG 1X PER 1 DAY ORAL ; 4 MG 1X PER DAY ORAL ; 5 MG 2X PER 1 DAY ORAL ; 4 MG 2X PER 1 DAY ORAL
     Route: 048
     Dates: start: 20041001, end: 20060806
  3. RAPAMUNE [Suspect]
     Indication: RENAL TRANSPLANT
     Dosage: 8 MG 1X PER 1 DAY ORAL ; 4 MG 1X PER DAY ORAL ; 5 MG 2X PER 1 DAY ORAL ; 4 MG 2X PER 1 DAY ORAL
     Route: 048
     Dates: start: 20010501
  4. RAPAMUNE [Suspect]
     Indication: RENAL TRANSPLANT
     Dosage: 8 MG 1X PER 1 DAY ORAL ; 4 MG 1X PER DAY ORAL ; 5 MG 2X PER 1 DAY ORAL ; 4 MG 2X PER 1 DAY ORAL
     Route: 048
     Dates: start: 20060807
  5. PROGRAF [Concomitant]
  6. PREDNISONE TAB [Concomitant]
  7. HUMALOG [Concomitant]

REACTIONS (10)
  - CEREBROVASCULAR ACCIDENT [None]
  - DYSPEPSIA [None]
  - DYSPHAGIA [None]
  - GAIT DISTURBANCE [None]
  - GASTRITIS [None]
  - IMMUNOSUPPRESSANT DRUG LEVEL DECREASED [None]
  - IMPAIRED GASTRIC EMPTYING [None]
  - MUSCULAR WEAKNESS [None]
  - MYOPATHY [None]
  - WEIGHT FLUCTUATION [None]
